FAERS Safety Report 21338314 (Version 1)
Quarter: 2022Q3

REPORT INFORMATION
  Report Type: Spontaneous
  Country: US (occurrence: US)
  Receive Date: 20220915
  Receipt Date: 20220915
  Transmission Date: 20221026
  Serious: Yes (Disabling, Other)
  Sender: FDA-Public Use
  Company Number: US-PFIZER INC-202201156396

PATIENT
  Age: 64 Year
  Sex: Female
  Weight: 72.57 kg

DRUGS (1)
  1. ARTHROTEC [Suspect]
     Active Substance: DICLOFENAC SODIUM\MISOPROSTOL
     Indication: Osteoarthritis
     Dosage: 75-0.2MG, 1X/DAY

REACTIONS (7)
  - Intentional product misuse [Unknown]
  - Discomfort [Unknown]
  - Poor quality sleep [Unknown]
  - Arthritis [Unknown]
  - Pain [Unknown]
  - Asthenia [Unknown]
  - Osteoporosis [Unknown]
